FAERS Safety Report 4980239-7 (Version None)
Quarter: 2006Q2

REPORT INFORMATION
  Report Type: 
  Country: None (occurrence: None)
  Receive Date: 20060424
  Receipt Date: 20060310
  Transmission Date: 20061013
  Serious: Yes (Other)
  Sender: FDA-Public Use
  Company Number: PHEH2006US03285

PATIENT
  Age: 82 Year
  Sex: Male

DRUGS (2)
  1. TAXOTERE [Concomitant]
     Indication: PROSTATE CANCER
     Dosage: 100 MG, EVERY 3 WEEKS
     Dates: start: 20050510, end: 20051018
  2. ZOMETA [Suspect]
     Indication: METASTASES TO BONE
     Dosage: 4 MG, EVERY MONTH
     Dates: start: 20050510, end: 20060110

REACTIONS (7)
  - BONE DISORDER [None]
  - ORAL SOFT TISSUE DISORDER [None]
  - OSTEOMYELITIS [None]
  - OSTEONECROSIS [None]
  - PAIN [None]
  - TOOTH EXTRACTION [None]
  - WOUND DEBRIDEMENT [None]
